FAERS Safety Report 8016045-9 (Version None)
Quarter: 2011Q4

REPORT INFORMATION
  Report Type: 
  Country: None (occurrence: None)
  Receive Date: 20111230
  Receipt Date: 20111230
  Transmission Date: 20120403
  Serious: Yes (Hospitalization, Other)
  Sender: FDA-Public Use
  Company Number: None

PATIENT
  Age: 29 Year
  Sex: Female
  Weight: 68.492 kg

DRUGS (1)
  1. MIRENA [Suspect]
     Indication: ENDOMETRIOSIS
     Dosage: 52 MG  LEVONORGESTREL.
     Dates: start: 20110825, end: 20110826

REACTIONS (4)
  - MUSCLE SPASMS [None]
  - DEVICE DISLOCATION [None]
  - ABDOMINAL PAIN [None]
  - UTERINE PERFORATION [None]
